FAERS Safety Report 5428951-X (Version None)
Quarter: 2007Q3

REPORT INFORMATION
  Report Type: 
  Country: None (occurrence: None)
  Receive Date: 20070827
  Receipt Date: 20070802
  Transmission Date: 20080115
  Serious: Yes (Hospitalization)
  Sender: FDA-Public Use
  Company Number: 20074031

PATIENT
  Age: 23 Year
  Sex: Male

DRUGS (1)
  1. LIORESAL [Suspect]
     Indication: MUSCLE SPASTICITY
     Dosage: 250 MCG, DAILY, INTRATHECAL
     Route: 037

REACTIONS (3)
  - DEEP VEIN THROMBOSIS [None]
  - INFECTION [None]
  - WOUND DEHISCENCE [None]
